FAERS Safety Report 23620653 (Version 1)
Quarter: 2024Q1

REPORT INFORMATION
  Report Type: Report from Study
  Country: US (occurrence: US)
  Receive Date: 20240312
  Receipt Date: 20240312
  Transmission Date: 20240409
  Serious: Yes (Hospitalization)
  Sender: FDA-Public Use
  Company Number: US-ABBVIE-5497528

PATIENT
  Sex: Male

DRUGS (2)
  1. VENCLEXTA [Suspect]
     Active Substance: VENETOCLAX
     Indication: Acute myeloid leukaemia
     Dosage: FORM STRENGTH 100 MG, TOOK 1 TABLET WITH FOOD AND A FULL GLASS OF WATER
     Route: 048
     Dates: end: 20231024
  2. VENCLEXTA [Suspect]
     Active Substance: VENETOCLAX
     Indication: Acute myeloid leukaemia
     Dosage: FORM STRENGTH: 100 MG
     Route: 048

REACTIONS (5)
  - Platelet count decreased [Not Recovered/Not Resolved]
  - Haemoglobin decreased [Unknown]
  - Drug ineffective [Not Recovered/Not Resolved]
  - Oral pain [Not Recovered/Not Resolved]
  - Feeding disorder [Not Recovered/Not Resolved]
